FAERS Safety Report 10408480 (Version 1)
Quarter: 2014Q3

REPORT INFORMATION
  Report Type: Spontaneous
  Country: US (occurrence: None)
  Receive Date: 20140822
  Receipt Date: 20140822
  Transmission Date: 20150326
  Serious: Yes (Life-Threatening, Hospitalization)
  Sender: FDA-Public Use
  Company Number: None

PATIENT
  Age: 13 Year
  Sex: Male
  Weight: 95.26 kg

DRUGS (1)
  1. MONTELUKAST SODIUM 10MG [Suspect]
     Active Substance: MONTELUKAST SODIUM
     Indication: SEASONAL ALLERGY
     Dosage: ONE PILL ONCE DAILY TAKEN BY MOUTH
     Route: 048
     Dates: start: 20121008, end: 20140804

REACTIONS (6)
  - Hostility [None]
  - Irritability [None]
  - Restlessness [None]
  - Suicidal ideation [None]
  - Depression [None]
  - Anxiety [None]

NARRATIVE: CASE EVENT DATE: 20130610
